FAERS Safety Report 5943183-4 (Version None)
Quarter: 2008Q4

REPORT INFORMATION
  Report Type: 
  Country: None (occurrence: None)
  Receive Date: 20081106
  Receipt Date: 20081031
  Transmission Date: 20090506
  Serious: Yes (Hospitalization)
  Sender: FDA-Public Use
  Company Number: A0755213A

PATIENT
  Age: 62 Year
  Sex: Male
  Weight: 103.2 kg

DRUGS (7)
  1. AVANDIA [Suspect]
     Dosage: 4MG PER DAY
     Route: 048
     Dates: start: 20010101, end: 20070429
  2. DIABETA [Concomitant]
     Dates: start: 20070329
  3. NAPROXEN [Concomitant]
  4. ATENOLOL [Concomitant]
     Dates: start: 19960101
  5. DIAZIDE [Concomitant]
  6. LIPITOR [Concomitant]
     Dates: start: 20020101
  7. PROZAC [Concomitant]

REACTIONS (1)
  - MYOCARDIAL INFARCTION [None]
